FAERS Safety Report 23260803 (Version 1)
Quarter: 2023Q4

REPORT INFORMATION
  Report Type: Spontaneous
  Country: US (occurrence: US)
  Receive Date: 20231205
  Receipt Date: 20231205
  Transmission Date: 20240109
  Serious: Yes (Hospitalization)
  Sender: FDA-Public Use
  Company Number: US-STERISCIENCE B.V.-2023-ST-001194

PATIENT
  Age: 75 Year
  Sex: Female

DRUGS (18)
  1. BUPIVACAINE [Suspect]
     Active Substance: BUPIVACAINE
     Indication: Neuralgia
     Dosage: UNK, INJECTION
     Route: 065
  2. BUPIVACAINE [Suspect]
     Active Substance: BUPIVACAINE
     Indication: Post herpetic neuralgia
  3. GABAPENTIN [Suspect]
     Active Substance: GABAPENTIN
     Indication: Neuralgia
     Dosage: UNK
     Route: 065
  4. GABAPENTIN [Suspect]
     Active Substance: GABAPENTIN
     Indication: Post herpetic neuralgia
  5. TOPIRAMATE [Suspect]
     Active Substance: TOPIRAMATE
     Indication: Neuralgia
     Dosage: UNK
     Route: 065
  6. TOPIRAMATE [Suspect]
     Active Substance: TOPIRAMATE
     Indication: Post herpetic neuralgia
  7. ACETAMINOPHEN [Suspect]
     Active Substance: ACETAMINOPHEN
     Indication: Neuralgia
     Dosage: UNK
     Route: 065
  8. ACETAMINOPHEN [Suspect]
     Active Substance: ACETAMINOPHEN
     Indication: Post herpetic neuralgia
  9. CARBAMAZEPINE [Suspect]
     Active Substance: CARBAMAZEPINE
     Indication: Neuralgia
     Dosage: UNK
     Route: 065
  10. CARBAMAZEPINE [Suspect]
     Active Substance: CARBAMAZEPINE
     Indication: Post herpetic neuralgia
  11. LIDOCAINE [Suspect]
     Active Substance: LIDOCAINE
     Indication: Neuralgia
     Dosage: UNK
     Route: 061
  12. LIDOCAINE [Suspect]
     Active Substance: LIDOCAINE
     Indication: Post herpetic neuralgia
  13. VENLAFAXINE [Suspect]
     Active Substance: VENLAFAXINE HYDROCHLORIDE
     Indication: Neuralgia
     Dosage: UNK
     Route: 065
  14. VENLAFAXINE [Suspect]
     Active Substance: VENLAFAXINE HYDROCHLORIDE
     Indication: Post herpetic neuralgia
  15. LIDOCAINE [Suspect]
     Active Substance: LIDOCAINE
     Indication: Neuralgia
     Dosage: UNK
     Route: 065
  16. LIDOCAINE [Suspect]
     Active Substance: LIDOCAINE
     Indication: Post herpetic neuralgia
  17. TRIAMCINOLONE [Suspect]
     Active Substance: TRIAMCINOLONE
     Indication: Neuralgia
     Dosage: UNK
     Route: 065
  18. TRIAMCINOLONE [Suspect]
     Active Substance: TRIAMCINOLONE
     Indication: Post herpetic neuralgia

REACTIONS (1)
  - Drug ineffective for unapproved indication [Unknown]
